FAERS Safety Report 4602706-8 (Version None)
Quarter: 2005Q1

REPORT INFORMATION
  Report Type: 
  Country: None (occurrence: None)
  Receive Date: 20050307
  Receipt Date: 20050226
  Transmission Date: 20050727
  Serious: Yes (Hospitalization)
  Sender: FDA-Public Use
  Company Number: 163-20785-04080611

PATIENT
  Age: 84 Year
  Sex: Female

DRUGS (12)
  1. THALOMID [Suspect]
     Indication: MYELODYSPLASTIC SYNDROME
     Dosage: 200 MG, DAILY, ORAL
     Route: 048
     Dates: start: 20031126, end: 20040101
  2. PREDNISONE [Concomitant]
     Dosage: 10 MG, DAILY
  3. PLAVIX [Concomitant]
  4. FUROSEMIDE [Concomitant]
  5. LISINOPRIL [Concomitant]
  6. TOPROL-XL [Concomitant]
  7. ZAROXOLYN [Concomitant]
  8. PREVACID [Concomitant]
  9. DIGOXIN [Concomitant]
  10. LIPITOR [Concomitant]
  11. MAGNESIUM (MAGNESIUM) [Concomitant]
  12. ASPIRIN [Concomitant]

REACTIONS (10)
  - ANAEMIA [None]
  - BLOOD ALBUMIN DECREASED [None]
  - BLOOD SODIUM DECREASED [None]
  - BLOOD UREA INCREASED [None]
  - BUNDLE BRANCH BLOCK LEFT [None]
  - DIVERTICULUM [None]
  - LOWER GASTROINTESTINAL HAEMORRHAGE [None]
  - NAUSEA [None]
  - TUBERCULOSIS [None]
  - VOMITING [None]
